FAERS Safety Report 10331657 (Version 2)
Quarter: 2014Q3

REPORT INFORMATION
  Report Type: Spontaneous
  Country: GB (occurrence: GB)
  Receive Date: 20140722
  Receipt Date: 20140722
  Transmission Date: 20150326
  Serious: Yes (Life-Threatening, Hospitalization, Other)
  Sender: FDA-Public Use
  Company Number: GB-TEVA-164712ISR

PATIENT
  Age: 49 Year
  Sex: Male

DRUGS (3)
  1. TRAMADOL [Suspect]
     Active Substance: TRAMADOL
     Indication: HUMERUS FRACTURE
     Route: 048
  2. TRAMADOL [Suspect]
     Active Substance: TRAMADOL
     Indication: PAIN
  3. MORPHINE [Suspect]
     Active Substance: MORPHINE
     Indication: HUMERUS FRACTURE
     Dosage: 30 MILLIGRAM DAILY;

REACTIONS (6)
  - Hyperhidrosis [Unknown]
  - Generalised erythema [Unknown]
  - Hypertension [Unknown]
  - Serotonin syndrome [Unknown]
  - Generalised tonic-clonic seizure [Unknown]
  - Tachycardia [Unknown]
